FAERS Safety Report 12594288 (Version 3)
Quarter: 2016Q3

REPORT INFORMATION
  Report Type: Spontaneous
  Country: HK (occurrence: HK)
  Receive Date: 20160726
  Receipt Date: 20160812
  Transmission Date: 20161109
  Serious: Yes (Death, Other)
  Sender: FDA-Public Use
  Company Number: HK-ASTELLAS-2016US028268

PATIENT
  Age: 99 Year
  Sex: Male

DRUGS (6)
  1. XTANDI [Suspect]
     Active Substance: ENZALUTAMIDE
     Dosage: 80 MG, ONCE DAILY (2 TO 3 WEEKS)
     Route: 048
     Dates: start: 201512, end: 20160201
  2. CASODEX [Concomitant]
     Active Substance: BICALUTAMIDE
     Indication: PRODUCT USED FOR UNKNOWN INDICATION
     Dosage: UNK UNK, UNKNOWN FREQ.
     Route: 065
     Dates: start: 201306, end: 201412
  3. ZYTIGA [Suspect]
     Active Substance: ABIRATERONE ACETATE
     Indication: PRODUCT USED FOR UNKNOWN INDICATION
     Dosage: 1000 MG DAILY DOSE, UNKNOWN FREQ.
     Route: 065
     Dates: start: 201501, end: 201510
  4. PREDNISOLONE. [Concomitant]
     Active Substance: PREDNISOLONE
     Indication: PRODUCT USED FOR UNKNOWN INDICATION
     Dosage: 10 MG DAILY DOSE, UNKNOWN FREQ.
     Route: 065
     Dates: start: 201501, end: 201510
  5. XTANDI [Suspect]
     Active Substance: ENZALUTAMIDE
     Indication: HORMONE-REFRACTORY PROSTATE CANCER
     Route: 048
     Dates: start: 201511, end: 201512
  6. ASPIRIN. [Concomitant]
     Active Substance: ASPIRIN
     Indication: PRODUCT USED FOR UNKNOWN INDICATION
     Dosage: 100 MG DAILY DOSE, UNKNOWN FREQ.
     Route: 065
     Dates: start: 201501, end: 201510

REACTIONS (2)
  - Generalised oedema [Recovered/Resolved]
  - Brain cancer metastatic [Fatal]

NARRATIVE: CASE EVENT DATE: 201512
